FAERS Safety Report 25703586 (Version 1)
Quarter: 2025Q3

REPORT INFORMATION
  Report Type: Other
  Country: US (occurrence: US)
  Receive Date: 20250820
  Receipt Date: 20250820
  Transmission Date: 20251021
  Serious: No
  Sender: VERASTEM
  Company Number: US-VERASTEM-2025-00165

PATIENT

DRUGS (7)
  1. AVMAPKI FAKZYNJA CO-PACK [Suspect]
     Active Substance: AVUTOMETINIB POTASSIUM\DEFACTINIB HYDROCHLORIDE
     Indication: Colon cancer
     Dosage: AVMAPKI 3.2 MG TWICE WEEKLY/ FAKZYNJA 200MG
     Route: 048
     Dates: start: 20250616
  2. ASPIRIN [Concomitant]
     Active Substance: ASPIRIN
     Indication: Product used for unknown indication
  3. DOXYCYCLINE [Concomitant]
     Active Substance: DOXYCYCLINE
     Indication: Product used for unknown indication
  4. ERBITUX [Concomitant]
     Active Substance: CETUXIMAB
     Indication: Colon cancer
  5. LEVOTHYROXINE [Concomitant]
     Active Substance: LEVOTHYROXINE
     Indication: Product used for unknown indication
  6. TAMSULOSIN [Concomitant]
     Active Substance: TAMSULOSIN
     Indication: Product used for unknown indication
  7. HYDROCORTISONE [Concomitant]
     Active Substance: HYDROCORTISONE
     Indication: Pruritus

REACTIONS (1)
  - Off label use [Unknown]

NARRATIVE: CASE EVENT DATE: 20250616
